FAERS Safety Report 23610925 (Version 1)
Quarter: 2024Q1

REPORT INFORMATION
  Report Type: Spontaneous
  Country: JP (occurrence: JP)
  Receive Date: 20240308
  Receipt Date: 20240308
  Transmission Date: 20240409
  Serious: Yes (Hospitalization, Other)
  Sender: FDA-Public Use
  Company Number: JP-002147023-NVSJ2024JP002596

PATIENT

DRUGS (2)
  1. RUXOLITINIB [Suspect]
     Active Substance: RUXOLITINIB
     Indication: Myeloproliferative neoplasm
     Dosage: UNK
     Route: 048
     Dates: start: 201812, end: 202301
  2. RUXOLITINIB [Suspect]
     Active Substance: RUXOLITINIB
     Dosage: UNK
     Route: 048
     Dates: start: 202308

REACTIONS (1)
  - Diffuse large B-cell lymphoma [Recovered/Resolved]

NARRATIVE: CASE EVENT DATE: 20221101
